FAERS Safety Report 9685210 (Version 4)
Quarter: 2014Q1

REPORT INFORMATION
  Report Type: Spontaneous
  Country: JP (occurrence: JP)
  Receive Date: 20131113
  Receipt Date: 20140127
  Transmission Date: 20141002
  Serious: Yes (Hospitalization, Disabling)
  Sender: FDA-Public Use
  Company Number: JP-CELGENEUS-087-21880-13106118

PATIENT
  Age: 78 Year
  Sex: Male
  Weight: 46.8 kg

DRUGS (25)
  1. REVLIMID [Suspect]
     Indication: PLASMA CELL MYELOMA
     Dosage: 5 MILLIGRAM
     Route: 048
     Dates: start: 20130621, end: 20131018
  2. PREDONINE [Concomitant]
     Indication: PLASMA CELL MYELOMA
     Route: 048
     Dates: start: 20130621, end: 20131018
  3. PREDONINE [Concomitant]
     Route: 065
     Dates: start: 20131028
  4. PARIET [Concomitant]
     Indication: PROPHYLAXIS AGAINST GASTROINTESTINAL ULCER
     Dosage: 10 MILLIGRAM
     Route: 048
     Dates: start: 20110909, end: 20131108
  5. BAYASPIRIN [Concomitant]
     Indication: THROMBOSIS PROPHYLAXIS
     Dosage: 100 MILLIGRAM
     Route: 048
     Dates: start: 20130621, end: 20131025
  6. FLUITRAN [Concomitant]
     Indication: CARDIAC FAILURE
     Dosage: 2 MILLIGRAM
     Route: 048
     Dates: start: 20130621, end: 20130704
  7. LYRICA [Concomitant]
     Indication: LUMBAR SPINAL STENOSIS
     Dosage: 75 MILLIGRAM
     Route: 048
     Dates: start: 20130604, end: 20130930
  8. LOXONIN [Concomitant]
     Indication: LUMBAR SPINAL STENOSIS
     Dosage: 180 MILLIGRAM
     Route: 048
     Dates: start: 20130604, end: 20130820
  9. MUCOSTA [Concomitant]
     Indication: PROPHYLAXIS AGAINST GASTROINTESTINAL ULCER
     Dosage: 300 MILLIGRAM
     Route: 048
     Dates: start: 20130604, end: 20130930
  10. TRAMAL [Concomitant]
     Indication: LUMBAR SPINAL STENOSIS
     Dosage: 50 MILLIGRAM
     Route: 048
     Dates: start: 20130705, end: 20130719
  11. DIART [Concomitant]
     Indication: CARDIAC FAILURE
     Dosage: 30 MILLIGRAM
     Route: 048
     Dates: start: 20130705, end: 20130816
  12. ARTIST [Concomitant]
     Indication: CARDIAC FAILURE
     Dosage: 2.5 MILLIGRAM
     Route: 048
     Dates: start: 20120106, end: 20131202
  13. RENIVACE [Concomitant]
     Indication: CARDIAC FAILURE
     Dosage: 5 MILLIGRAM
     Route: 048
     Dates: start: 20120120, end: 20131202
  14. CELECOX [Concomitant]
     Indication: LUMBAR SPINAL STENOSIS
     Dosage: 200 MILLIGRAM
     Route: 048
     Dates: start: 20130821, end: 20130930
  15. ZOVIRAX [Concomitant]
     Indication: ANTIVIRAL PROPHYLAXIS
     Route: 048
     Dates: start: 20130907, end: 20131108
  16. ZOMETA [Concomitant]
     Indication: OSTEOPOROSIS PROPHYLAXIS
     Dosage: 3 MILLIGRAM
     Route: 041
     Dates: start: 20130906, end: 20130906
  17. SUMILU STICK [Concomitant]
     Indication: LUMBAR SPINAL STENOSIS
     Route: 061
     Dates: start: 20130709, end: 20130816
  18. FOSAMAC [Concomitant]
     Indication: OSTEOPOROSIS PROPHYLAXIS
     Route: 048
     Dates: start: 20131025, end: 20131202
  19. GASTER D [Concomitant]
     Indication: PROPHYLAXIS AGAINST GASTROINTESTINAL ULCER
     Dosage: 40 MILLIGRAM
     Route: 048
     Dates: start: 20131025, end: 20131111
  20. GASTER D [Concomitant]
     Dosage: 20 MILLIGRAM
     Route: 048
     Dates: start: 20131102, end: 20131122
  21. GASTER D [Concomitant]
     Dosage: 10 MILLIGRAM
     Route: 048
     Dates: start: 20131123, end: 20131202
  22. MYSLEE [Concomitant]
     Indication: PROPHYLAXIS
     Route: 048
     Dates: start: 20131025, end: 20131122
  23. ITRIZOLE [Concomitant]
     Indication: ANTIFUNGAL PROPHYLAXIS
     Dosage: 100 MILLIGRAM
     Route: 048
     Dates: start: 20131113, end: 20131202
  24. MEPTIN AIR [Concomitant]
     Indication: INFECTION PROPHYLAXIS
     Route: 055
     Dates: start: 20130719, end: 20131202
  25. BENAMBAX [Concomitant]
     Indication: INFECTION PROPHYLAXIS
     Route: 055
     Dates: start: 20130719, end: 20131202

REACTIONS (2)
  - Optic neuritis [Not Recovered/Not Resolved]
  - Eyelid ptosis [Unknown]
